FAERS Safety Report 16513354 (Version 1)
Quarter: 2019Q3

REPORT INFORMATION
  Report Type: Spontaneous
  Country: US (occurrence: US)
  Receive Date: 20190702
  Receipt Date: 20190702
  Transmission Date: 20191004
  Serious: Yes (Other)
  Sender: FDA-Public Use
  Company Number: US-STRIDES ARCOLAB LIMITED-2019SP004111

PATIENT
  Age: 54 Year
  Sex: Male

DRUGS (2)
  1. KETOCONAZOLE. [Suspect]
     Active Substance: KETOCONAZOLE
     Indication: ECTOPIC ACTH SYNDROME
     Dosage: 300 MG, BID
     Route: 065
  2. MIFEPRISTONE [Suspect]
     Active Substance: MIFEPRISTONE
     Indication: ECTOPIC ACTH SYNDROME
     Dosage: 300 MG DAILY FOR 1 WEEK
     Route: 065

REACTIONS (2)
  - Off label use [Unknown]
  - Adrenal insufficiency [Recovered/Resolved]
